FAERS Safety Report 11548348 (Version 2)
Quarter: 2015Q3

REPORT INFORMATION
  Report Type: Spontaneous
  Country: IT (occurrence: IT)
  Receive Date: 20150924
  Receipt Date: 20150924
  Transmission Date: 20151125
  Serious: Yes (Hospitalization)
  Sender: FDA-Public Use
  Company Number: IT-SA-2015SA142441

PATIENT
  Age: 70 Year
  Sex: Female

DRUGS (7)
  1. SEROQUEL [Concomitant]
     Active Substance: QUETIAPINE FUMARATE
     Dosage: STRENGTH: ^150 MG FILM-COATED TABLETS^
     Route: 048
  2. APIDRA [Suspect]
     Active Substance: INSULIN GLULISINE
     Indication: DIABETES MELLITUS
     Route: 058
     Dates: start: 20150101, end: 20150603
  3. SEROQUEL [Concomitant]
     Active Substance: QUETIAPINE FUMARATE
     Dosage: STRENGTH: 200 MG PROLONGED RELEASE TABLETS
     Route: 048
  4. XANAX [Concomitant]
     Active Substance: ALPRAZOLAM
     Dosage: STRENGTH: ^0.50 MG TABLETS
     Route: 048
  5. DAPAROX [Concomitant]
     Active Substance: PAROXETINE HYDROCHLORIDE
     Dosage: STRENGTH: 33.1 MG / ML ORAL DROPS, 1 VIAL OF 18.5 ML SOLUTION ^ WITH DOSING SYRINGE
     Route: 048
  6. RAMIPRIL. [Concomitant]
     Active Substance: RAMIPRIL
     Route: 048
  7. LANTUS [Suspect]
     Active Substance: INSULIN GLARGINE
     Indication: DIABETES MELLITUS
     Route: 058
     Dates: start: 20150101, end: 20150603

REACTIONS (2)
  - Hypoglycaemia [Unknown]
  - Drop attacks [Unknown]

NARRATIVE: CASE EVENT DATE: 20150603
